FAERS Safety Report 8382317-1 (Version None)
Quarter: 2012Q2

REPORT INFORMATION
  Report Type: 
  Country: None (occurrence: None)
  Receive Date: 20120524
  Receipt Date: 20120517
  Transmission Date: 20120825
  Serious: Yes (Other)
  Sender: FDA-Public Use
  Company Number: US-BAYER-201015523NA

PATIENT
  Age: 37 Year
  Sex: Female
  Weight: 72.562 kg

DRUGS (8)
  1. YAZ [Suspect]
     Indication: CONTRACEPTION
     Dosage: UNK
     Route: 048
     Dates: start: 20070512, end: 20080324
  2. PREDNISONE TAB [Concomitant]
     Dosage: 10 MG
     Dates: start: 20080312
  3. PRAVACHOL [Concomitant]
     Indication: BLOOD CHOLESTEROL INCREASED
     Dosage: UNK
     Dates: start: 20080312
  4. TRAMADOL HYDROCHLORIDE [Concomitant]
     Dosage: 50 MG
     Dates: start: 20080312
  5. PRAVASTATIN [Concomitant]
     Dosage: 20 MG
  6. MULTI-VITAMINS [Concomitant]
  7. IBUPROFEN (ADVIL) [Concomitant]
     Dosage: 400 MG, QD OR BID
     Dates: start: 20080312
  8. NASONEX [Concomitant]
     Dosage: UNK
     Dates: start: 20080312

REACTIONS (1)
  - DEEP VEIN THROMBOSIS [None]
